FAERS Safety Report 9315473 (Version 1)
Quarter: 2013Q2

REPORT INFORMATION
  Report Type: Spontaneous
  Country: US (occurrence: US)
  Receive Date: 20130529
  Receipt Date: 20130529
  Transmission Date: 20140414
  Serious: No
  Sender: FDA-Public Use
  Company Number: US-TEVA-408280USA

PATIENT
  Sex: Male

DRUGS (1)
  1. QNASL [Suspect]
     Dates: start: 201304

REACTIONS (2)
  - Dysgeusia [Unknown]
  - Nasal discomfort [Unknown]
